FAERS Safety Report 16790874 (Version 2)
Quarter: 2019Q4

REPORT INFORMATION
  Report Type: Spontaneous
  Country: JP (occurrence: JP)
  Receive Date: 20190910
  Receipt Date: 20191021
  Transmission Date: 20200122
  Serious: Yes (Other)
  Sender: FDA-Public Use
  Company Number: JP-COVIS PHARMA B.V.-2019COV00216

PATIENT
  Age: 60 Year
  Sex: Male

DRUGS (4)
  1. ALVESCO [Suspect]
     Active Substance: CICLESONIDE
     Indication: ASTHMA
     Dosage: 200 ?G EVERY AM
     Dates: start: 20180126, end: 2018
  2. ALVESCO [Suspect]
     Active Substance: CICLESONIDE
     Dosage: 100 ?G, 1X/DAY
     Dates: start: 20190607, end: 20190620
  3. HOKUNALIN [Concomitant]
     Active Substance: TULOBUTEROL
     Dosage: 2 MG, 1X/DAY
     Route: 061
     Dates: start: 20190201
  4. SPIOLTO RESPIMAT [Concomitant]
     Active Substance: OLODATEROL HYDROCHLORIDE\TIOTROPIUM BROMIDE MONOHYDRATE
     Indication: CHRONIC OBSTRUCTIVE PULMONARY DISEASE
     Dosage: 2 DF, 1X/DAY
     Dates: start: 20171020

REACTIONS (6)
  - Therapy cessation [Recovered/Resolved]
  - Malaise [Recovered/Resolved]
  - Nausea [Unknown]
  - Seizure [Recovered/Resolved]
  - Hypertension [Unknown]
  - Reaction to excipient [Recovered/Resolved]

NARRATIVE: CASE EVENT DATE: 201805
